FAERS Safety Report 8610421-9 (Version None)
Quarter: 2012Q3

REPORT INFORMATION
  Report Type: 
  Country: None (occurrence: None)
  Receive Date: 20120822
  Receipt Date: 20120817
  Transmission Date: 20120928
  Serious: No
  Sender: FDA-Public Use
  Company Number: US-PFIZER INC-2012180809

PATIENT
  Age: 56 Year
  Sex: Female

DRUGS (2)
  1. ZOLOFT [Suspect]
     Dosage: 100 MG, 2X/DAY
  2. NORVASC [Suspect]
     Dosage: 10 MG, DAILY

REACTIONS (1)
  - NO ADVERSE EVENT [None]
